FAERS Safety Report 4609279-4 (Version None)
Quarter: 2005Q1

REPORT INFORMATION
  Report Type: 
  Country: None (occurrence: None)
  Receive Date: 20050315
  Receipt Date: 20050113
  Transmission Date: 20050727
  Serious: Yes (Hospitalization)
  Sender: FDA-Public Use
  Company Number: ES-MERCK-0501ESP00011

PATIENT
  Age: 37 Year
  Sex: Female
  Weight: 71 kg

DRUGS (3)
  1. SINGULAIR [Suspect]
     Indication: ASTHMA
     Route: 048
     Dates: start: 20040713, end: 20040929
  2. ASPIRIN [Concomitant]
     Indication: MITRAL VALVE PROLAPSE
     Route: 048
  3. FLUTICASONE PROPIONATE AND SALMETEROL XINAFOATE [Concomitant]
     Indication: ASTHMA
     Route: 055
     Dates: start: 20031014

REACTIONS (1)
  - ALLERGIC GRANULOMATOUS ANGIITIS [None]
